FAERS Safety Report 19599005 (Version 1)
Quarter: 2021Q3

REPORT INFORMATION
  Report Type: Spontaneous
  Country: CH (occurrence: CH)
  Receive Date: 20210722
  Receipt Date: 20210722
  Transmission Date: 20211014
  Serious: Yes (Other)
  Sender: FDA-Public Use
  Company Number: CH-BAYER-2021-094747

PATIENT
  Sex: Male

DRUGS (2)
  1. VITRAKVI [Suspect]
     Active Substance: LAROTRECTINIB
     Indication: BLADDER TRANSITIONAL CELL CARCINOMA METASTATIC
     Dosage: 100 MG, BID
  2. VITRAKVI [Suspect]
     Active Substance: LAROTRECTINIB
     Indication: BLADDER TRANSITIONAL CELL CARCINOMA METASTATIC
     Dosage: 75 MG, QD
     Dates: end: 202107

REACTIONS (4)
  - Dizziness [None]
  - Bladder transitional cell carcinoma metastatic [None]
  - Hypotension [None]
  - Off label use [None]
